FAERS Safety Report 9212867 (Version 1)
Quarter: 2013Q1

REPORT INFORMATION
  Report Type: Spontaneous
  Country: US (occurrence: None)
  Receive Date: 20120824
  Receipt Date: 20120824
  Transmission Date: 20140127
  Serious: Yes (Hospitalization)
  Sender: FDA-Public Use
  Company Number: A-US2011-58998

PATIENT
  Age: 45 Year
  Sex: Female

DRUGS (2)
  1. VELETRI [Suspect]
     Dosage: 12 NG/KG, PER MIN, INTRAVENOUS
     Route: 042
     Dates: start: 20120607
  2. CALCIUM CHANNEL BLOCKERS [Concomitant]

REACTIONS (1)
  - Sepsis [None]
